FAERS Safety Report 5601132-2 (Version None)
Quarter: 2008Q1

REPORT INFORMATION
  Report Type: 
  Country: None (occurrence: None)
  Receive Date: 20080122
  Receipt Date: 20080122
  Transmission Date: 20080703
  Serious: Yes (Life-Threatening)
  Sender: FDA-Public Use
  Company Number: None

PATIENT
  Age: 61 Year
  Sex: Female
  Weight: 56.6996 kg

DRUGS (3)
  1. EFFEXOR XR [Suspect]
     Indication: ANXIETY
     Dosage: 225 MG DAILY PO
     Route: 048
     Dates: start: 19990510, end: 20080110
  2. EFFEXOR XR [Suspect]
     Indication: DEPRESSION
     Dosage: 225 MG DAILY PO
     Route: 048
     Dates: start: 19990510, end: 20080110
  3. CYMBALTA [Concomitant]

REACTIONS (7)
  - CRYING [None]
  - DISTURBANCE IN ATTENTION [None]
  - INSOMNIA [None]
  - MENTAL DISORDER [None]
  - RESTLESSNESS [None]
  - SUICIDAL IDEATION [None]
  - THINKING ABNORMAL [None]
